FAERS Safety Report 8282337-1 (Version None)
Quarter: 2012Q2

REPORT INFORMATION
  Report Type: 
  Country: None (occurrence: None)
  Receive Date: 20120410
  Receipt Date: 20120406
  Transmission Date: 20120825
  Serious: Yes (Hospitalization, Other)
  Sender: FDA-Public Use
  Company Number: ADR-2011-10798

PATIENT
  Age: 18 Year
  Sex: Male

DRUGS (1)
  1. LIORESAL [Suspect]
     Indication: MUSCLE SPASTICITY
     Dosage: DAILY, INTRATH
     Route: 037

REACTIONS (5)
  - DEVICE LEAKAGE [None]
  - INTRACRANIAL HYPOTENSION [None]
  - DEPRESSED LEVEL OF CONSCIOUSNESS [None]
  - CONSTIPATION [None]
  - GASTROINTESTINAL HAEMORRHAGE [None]
